FAERS Safety Report 19222094 (Version 1)
Quarter: 2021Q2

REPORT INFORMATION
  Report Type: Spontaneous
  Country: US (occurrence: US)
  Receive Date: 20210505
  Receipt Date: 20210505
  Transmission Date: 20210717
  Serious: Yes (Life-Threatening, Hospitalization, Disabling, Other)
  Sender: FDA-Public Use
  Company Number: None

PATIENT
  Age: 41 Year
  Sex: Female
  Weight: 58.5 kg

DRUGS (3)
  1. DIAZEPAM. [Suspect]
     Active Substance: DIAZEPAM
     Indication: ANXIETY DISORDER
     Route: 048
     Dates: start: 20140419
  2. KLONOPIN [Suspect]
     Active Substance: CLONAZEPAM
  3. VALIUM 2 MG [Concomitant]

REACTIONS (4)
  - Seizure [None]
  - Condition aggravated [None]
  - Akathisia [None]
  - Suicide attempt [None]

NARRATIVE: CASE EVENT DATE: 20191215
